FAERS Safety Report 23062397 (Version 2)
Quarter: 2023Q4

REPORT INFORMATION
  Report Type: Spontaneous
  Country: US (occurrence: US)
  Receive Date: 20231013
  Receipt Date: 20231017
  Transmission Date: 20240109
  Serious: No
  Sender: FDA-Public Use
  Company Number: US-SA-SAC20231005000530

PATIENT
  Sex: Male
  Weight: 92 kg

DRUGS (1)
  1. DUPIXENT [Suspect]
     Active Substance: DUPILUMAB
     Indication: Dermatitis atopic
     Dosage: UNK, 1X
     Route: 058

REACTIONS (5)
  - Drug hypersensitivity [Unknown]
  - Rash pruritic [Recovering/Resolving]
  - Rash macular [Unknown]
  - Tinea cruris [Unknown]
  - Acrochordon [Unknown]
